FAERS Safety Report 11344080 (Version 1)
Quarter: 2015Q3

REPORT INFORMATION
  Report Type: Spontaneous
  Country: US (occurrence: US)
  Receive Date: 20150806
  Receipt Date: 20150806
  Transmission Date: 20151125
  Serious: No
  Sender: FDA-Public Use
  Company Number: US-ASTRAZENECA-2015SE73481

PATIENT
  Sex: Male
  Weight: 99.8 kg

DRUGS (14)
  1. GLIMEPIRIDE. [Concomitant]
     Active Substance: GLIMEPIRIDE
     Indication: TYPE 2 DIABETES MELLITUS
  2. SIMVASTATIN. [Concomitant]
     Active Substance: SIMVASTATIN
  3. LOSARTAN. [Concomitant]
     Active Substance: LOSARTAN
  4. BYETTA [Concomitant]
     Active Substance: EXENATIDE
     Route: 065
  5. UBIQUINOL [Concomitant]
  6. ZYRTEC [Concomitant]
     Active Substance: CETIRIZINE HYDROCHLORIDE
     Indication: DEPRESSION
  7. BYDUREON [Suspect]
     Active Substance: EXENATIDE
     Indication: TYPE 2 DIABETES MELLITUS
     Route: 058
  8. LATANOPROST. [Concomitant]
     Active Substance: LATANOPROST
  9. LUMIGAN [Concomitant]
     Active Substance: BIMATOPROST
  10. CRESTOR [Suspect]
     Active Substance: ROSUVASTATIN CALCIUM
     Route: 048
  11. METFORMIN [Concomitant]
     Active Substance: METFORMIN HYDROCHLORIDE
     Indication: TYPE 2 DIABETES MELLITUS
  12. GLIPIZIDE. [Concomitant]
     Active Substance: GLIPIZIDE
     Indication: TYPE 2 DIABETES MELLITUS
  13. MULTI VITAMIN [Concomitant]
     Active Substance: VITAMINS
  14. BABY ASPIRIN [Concomitant]
     Active Substance: ASPIRIN
     Indication: HYPERTENSION

REACTIONS (5)
  - Injection site haemorrhage [Unknown]
  - Glycosylated haemoglobin increased [Unknown]
  - Drug dose omission [Unknown]
  - Underdose [Unknown]
  - Product quality issue [Unknown]
